FAERS Safety Report 9484295 (Version 2)
Quarter: 2013Q3

REPORT INFORMATION
  Report Type: Spontaneous
  Country: CA (occurrence: CA)
  Receive Date: 20130828
  Receipt Date: 20130828
  Transmission Date: 20140515
  Serious: Yes (Other)
  Sender: FDA-Public Use
  Company Number: CA-AMGEN-KDL284186

PATIENT
  Age: 55 Year
  Sex: Female
  Weight: 84.9 kg

DRUGS (13)
  1. ENBREL [Suspect]
     Indication: ANKYLOSING SPONDYLITIS
     Dosage: UNK UNK, QWK
     Route: 065
     Dates: start: 20071124
  2. CELECOXIB [Concomitant]
     Dosage: UNK UNK, UNK
     Dates: end: 20100409
  3. METHOTREXATE [Concomitant]
     Dosage: UNK UNK, UNK
     Dates: end: 201003
  4. ESOMEPRAZOLE MAGNESIUM [Concomitant]
  5. LEVOTHRYROXINE SODIUM [Concomitant]
  6. ESTRADIOL [Concomitant]
  7. FLUTICASONE PROPIONATE [Concomitant]
  8. ZOPICLONE [Concomitant]
  9. HERBAL SUPPLEMENT [Concomitant]
  10. ASPIRIN [Concomitant]
  11. ATORVASTATIN CALCIUM [Concomitant]
  12. NAPROXEN [Concomitant]
     Dosage: UNK UNK, UNK
     Dates: end: 20100413
  13. METOPROLOL [Concomitant]

REACTIONS (11)
  - Cardiac disorder [Unknown]
  - Weight decreased [Unknown]
  - Abdominal discomfort [Unknown]
  - Ulcer [Not Recovered/Not Resolved]
  - Oedema peripheral [Unknown]
  - Bronchitis [Recovering/Resolving]
  - Sinusitis [Recovering/Resolving]
  - Oral herpes [Not Recovered/Not Resolved]
  - Injection site erythema [Unknown]
  - Injection site swelling [Unknown]
  - Chest pain [Unknown]
